FAERS Safety Report 7763053-9 (Version None)
Quarter: 2011Q3

REPORT INFORMATION
  Report Type: 
  Country: None (occurrence: None)
  Receive Date: 20110920
  Receipt Date: 20110912
  Transmission Date: 20111222
  Serious: Yes (Other)
  Sender: FDA-Public Use
  Company Number: US-ASTRAZENECA-2011SE54799

PATIENT
  Age: 82 Year
  Sex: Female

DRUGS (2)
  1. SIMVASTATIN [Concomitant]
  2. CRESTOR [Suspect]
     Route: 048

REACTIONS (2)
  - BREAST CANCER FEMALE [None]
  - NEOPLASM MALIGNANT [None]
